FAERS Safety Report 5367323-3 (Version None)
Quarter: 2007Q2

REPORT INFORMATION
  Report Type: 
  Country: None (occurrence: None)
  Receive Date: 20070622
  Receipt Date: 20060504
  Transmission Date: 20071010
  Serious: No
  Sender: FDA-Public Use
  Company Number: US-ASTRAZENECA-2006UW08783

PATIENT
  Age: 72 Year
  Sex: Female

DRUGS (2)
  1. PULMICORT [Suspect]
     Indication: ASTHMA
     Route: 055
  2. PREVACID [Concomitant]

REACTIONS (3)
  - COUGH [None]
  - HEART RATE INCREASED [None]
  - PALPITATIONS [None]
